FAERS Safety Report 11553573 (Version 1)
Quarter: 2015Q3

REPORT INFORMATION
  Report Type: Spontaneous
  Country: US (occurrence: US)
  Receive Date: 20150903
  Receipt Date: 20150903
  Transmission Date: 20151125
  Serious: No
  Sender: FDA-Public Use
  Company Number: US-ELI_LILLY_AND_COMPANY-US201007001050

PATIENT
  Sex: Male
  Weight: 90.7 kg

DRUGS (2)
  1. HUMALOG MIX75/25 [Suspect]
     Active Substance: INSULIN LISPRO
     Dosage: 60 U, UNK
  2. HUMALOG MIX75/25 [Suspect]
     Active Substance: INSULIN LISPRO
     Indication: BLOOD GLUCOSE
     Dosage: 30 U, UNK

REACTIONS (3)
  - Blood glucose increased [Unknown]
  - Insomnia [Unknown]
  - Hypoaesthesia [Recovering/Resolving]
